FAERS Safety Report 7935607-8 (Version None)
Quarter: 2011Q4

REPORT INFORMATION
  Report Type: 
  Country: None (occurrence: None)
  Receive Date: 20111123
  Receipt Date: 20111111
  Transmission Date: 20120403
  Serious: Yes (Other)
  Sender: FDA-Public Use
  Company Number: CH-ELI_LILLY_AND_COMPANY-CH201111005570

PATIENT
  Age: 29 Year
  Sex: Female

DRUGS (1)
  1. FLUOXETINE HCL [Suspect]
     Indication: DEPRESSION
     Dosage: 20 MG, QD

REACTIONS (4)
  - OCULOGYRIC CRISIS [None]
  - GASTROENTERITIS [None]
  - DYSTONIA [None]
  - OROMANDIBULAR DYSTONIA [None]
